FAERS Safety Report 21507706 (Version 1)
Quarter: 2022Q4

REPORT INFORMATION
  Report Type: Spontaneous
  Country: JP (occurrence: JP)
  Receive Date: 20221026
  Receipt Date: 20221026
  Transmission Date: 20230112
  Serious: Yes (Hospitalization, Other)
  Sender: FDA-Public Use
  Company Number: JP-GLAXOSMITHKLINE-JP2022JPN149387

PATIENT

DRUGS (5)
  1. LAMICTAL [Suspect]
     Active Substance: LAMOTRIGINE
     Indication: Bipolar disorder
     Dosage: 200 MG/DAY
  2. LAMICTAL [Suspect]
     Active Substance: LAMOTRIGINE
     Indication: Depressive symptom
  3. LURASIDONE HYDROCHLORIDE [Suspect]
     Active Substance: LURASIDONE HYDROCHLORIDE
     Indication: Depressive symptom
     Dosage: 10 MG/DAY
  4. LURASIDONE HYDROCHLORIDE [Suspect]
     Active Substance: LURASIDONE HYDROCHLORIDE
     Dosage: 20 MG/DAY
  5. ASENAPINE MALEATE [Concomitant]
     Active Substance: ASENAPINE MALEATE
     Dosage: UNK

REACTIONS (12)
  - Hyperglycaemic hyperosmolar nonketotic syndrome [Recovered/Resolved]
  - Depression [Unknown]
  - Suicidal ideation [Unknown]
  - Gastric volvulus [Unknown]
  - Ischaemic gastritis [Unknown]
  - Pyloric stenosis [Unknown]
  - Diabetes mellitus [Unknown]
  - Depressed level of consciousness [Unknown]
  - Feeding disorder [Unknown]
  - Vomiting [Unknown]
  - Dehydration [Unknown]
  - Drug ineffective [Unknown]
